FAERS Safety Report 12103035 (Version 1)
Quarter: 2016Q1

REPORT INFORMATION
  Report Type: Spontaneous
  Country: US (occurrence: US)
  Receive Date: 20160222
  Receipt Date: 20160222
  Transmission Date: 20160526
  Serious: No
  Sender: FDA-Public Use
  Company Number: US-ENDO PHARMACEUTICALS INC-2016SCPR015096

PATIENT

DRUGS (4)
  1. NASCOBAL [Suspect]
     Active Substance: CYANOCOBALAMIN
     Indication: VITAMIN SUPPLEMENTATION
     Dosage: 500 MCG, WEEKLY
     Route: 045
     Dates: start: 201509, end: 20160107
  2. MULTIVITAMIN                       /00097801/ [Suspect]
     Active Substance: VITAMINS
     Indication: VITAMIN SUPPLEMENTATION
     Dosage: 1 TABLET MELTED ON TONGUE
     Route: 048
     Dates: start: 201509
  3. IRON + VITAMIN C [Suspect]
     Active Substance: ASCORBIC ACID\IRON
     Indication: VITAMIN SUPPLEMENTATION
     Dosage: 1 TABLET MELTED ON TONGUE
     Route: 048
     Dates: start: 201509
  4. CALCIUM, MAGNESIUM + VITAMIN D3 [Suspect]
     Active Substance: CALCIUM\CHOLECALCIFEROL\MAGNESIUM
     Indication: VITAMIN SUPPLEMENTATION
     Dosage: 1 TABLET MELTED ON TONGUE
     Route: 048
     Dates: start: 201509

REACTIONS (3)
  - Decreased appetite [Not Recovered/Not Resolved]
  - Abdominal discomfort [Not Recovered/Not Resolved]
  - Nausea [Not Recovered/Not Resolved]

NARRATIVE: CASE EVENT DATE: 201509
